FAERS Safety Report 7433149-X (Version None)
Quarter: 2011Q2

REPORT INFORMATION
  Report Type: 
  Country: None (occurrence: None)
  Receive Date: 20110415
  Receipt Date: 20110408
  Transmission Date: 20111010
  Serious: Yes (Other)
  Sender: FDA-Public Use
  Company Number: GER/UKI/11/0017955

PATIENT
  Age: 78 Year
  Sex: Female
  Weight: 56 kg

DRUGS (8)
  1. ALENDRONATE SODIUM [Suspect]
     Indication: PRODUCT USED FOR UNKNOWN INDICATION
     Dosage: 70 MG, 1 IN 1 WK
     Dates: start: 20110330
  2. SERETIDE (SERETIDE /01420901/) [Concomitant]
  3. TIOTROPIUM BROMIDE (TIOTROPIUM BROMIDE) [Concomitant]
  4. LEVOTHYROXINE (LEVOTHYROXINE) [Concomitant]
  5. PREDNISOLONE [Concomitant]
  6. TRAMADOL HCL [Concomitant]
  7. ALBUTEROL SULFATE [Concomitant]
  8. DOXYCYCLINE (DOXYCYCLINE) [Concomitant]

REACTIONS (1)
  - HICCUPS [None]
